FAERS Safety Report 14417508 (Version 1)
Quarter: 2018Q1

REPORT INFORMATION
  Report Type: Spontaneous
  Country: US (occurrence: US)
  Receive Date: 20180122
  Receipt Date: 20180122
  Transmission Date: 20180509
  Serious: No
  Sender: FDA-Public Use
  Company Number: US-009507513-1801USA007923

PATIENT
  Age: 48 Year
  Sex: Female
  Weight: 48 kg

DRUGS (12)
  1. ZEMURON [Suspect]
     Active Substance: ROCURONIUM BROMIDE
     Indication: HYPOXIA
  2. PROPOFOL. [Concomitant]
     Active Substance: PROPOFOL
     Dosage: DOSE INCREASED
  3. FENTANYL. [Concomitant]
     Active Substance: FENTANYL
     Indication: SEDATION
     Dosage: 200-300 MCG/H
  4. DIAZEPAM. [Concomitant]
     Active Substance: DIAZEPAM
     Indication: SEDATION
     Dosage: 10-20 MG PER DAY, REPETED BOLUSES
     Route: 042
  5. ZEMURON [Suspect]
     Active Substance: ROCURONIUM BROMIDE
     Indication: HAEMODYNAMIC INSTABILITY
     Dosage: UP TO 160 MG/DAY
  6. FENTANYL. [Concomitant]
     Active Substance: FENTANYL
     Dosage: DOSE INCREASED
  7. DEXMEDETOMIDINE. [Concomitant]
     Active Substance: DEXMEDETOMIDINE
     Dosage: DOSE INCREASED
  8. PROPOFOL. [Concomitant]
     Active Substance: PROPOFOL
     Indication: SEDATION
     Dosage: 40-70 MG/H
  9. DEXMEDETOMIDINE. [Concomitant]
     Active Substance: DEXMEDETOMIDINE
     Indication: SEDATION
     Dosage: UNK
  10. METHADONE HYDROCHLORIDE. [Concomitant]
     Active Substance: METHADONE HYDROCHLORIDE
     Indication: REVERSAL OF SEDATION
     Dosage: UP TO DOSE OF 145 MG/DAY
  11. RISPERIDONE. [Suspect]
     Active Substance: RISPERIDONE
     Indication: REVERSAL OF SEDATION
     Dosage: UNK
  12. DIAZEPAM. [Concomitant]
     Active Substance: DIAZEPAM
     Dosage: UP TO TOTAL 170 MG/ DAY, REPETED BOLUSES

REACTIONS (1)
  - Off label use [Unknown]
